FAERS Safety Report 25940484 (Version 1)
Quarter: 2025Q4

REPORT INFORMATION
  Report Type: Spontaneous
  Country: US (occurrence: US)
  Receive Date: 20251020
  Receipt Date: 20251020
  Transmission Date: 20260117
  Serious: No
  Sender: GUERBET
  Company Number: US-GUERBET / LLC-US-20250136

PATIENT
  Age: 75 Year
  Sex: Female

DRUGS (1)
  1. DOTAREM [Suspect]
     Active Substance: GADOTERATE MEGLUMINE
     Indication: Product used for unknown indication
     Route: 051
     Dates: start: 20250724, end: 20250724

REACTIONS (3)
  - Injection site pain [Recovering/Resolving]
  - Injection site swelling [Recovering/Resolving]
  - Hypoaesthesia oral [Unknown]

NARRATIVE: CASE EVENT DATE: 20250724
